FAERS Safety Report 8850770 (Version 2)
Quarter: 2013Q1

REPORT INFORMATION
  Report Type: Spontaneous
  Country: US (occurrence: US)
  Receive Date: 20121019
  Receipt Date: 20130212
  Transmission Date: 20140127
  Serious: No
  Sender: FDA-Public Use
  Company Number: US-ELI_LILLY_AND_COMPANY-US201210003874

PATIENT
  Age: 30 Year
  Sex: Male

DRUGS (11)
  1. FORTEO [Suspect]
     Indication: OSTEOPOROSIS
     Dosage: 20 UG, QD
     Dates: end: 201203
  2. FORTEO [Suspect]
     Dosage: 20 UG, QD
     Dates: end: 201207
  3. CALCIUM [Concomitant]
     Dosage: UNK
  4. THALLIUM [Concomitant]
     Dosage: UNK
  5. DOCUSATE [Concomitant]
     Dosage: UNK
  6. MULTIVITAMIN [Concomitant]
     Dosage: UNK
  7. IRON [Concomitant]
     Dosage: UNK
  8. PREVACID [Concomitant]
     Dosage: UNK
  9. MIRALAX [Concomitant]
     Dosage: UNK
  10. SENOKOT [Concomitant]
     Dosage: UNK
  11. COUMADIN [Concomitant]
     Indication: THROMBOSIS
     Dosage: UNK

REACTIONS (2)
  - International normalised ratio fluctuation [Recovered/Resolved]
  - Blood parathyroid hormone increased [Unknown]
